FAERS Safety Report 8309920-9 (Version None)
Quarter: 2012Q2

REPORT INFORMATION
  Report Type: 
  Country: None (occurrence: None)
  Receive Date: 20120425
  Receipt Date: 20120420
  Transmission Date: 20120825
  Serious: Yes (Other)
  Sender: FDA-Public Use
  Company Number: US-PFIZER INC-2012098571

PATIENT
  Sex: Female
  Weight: 44.444 kg

DRUGS (2)
  1. FLUCONAZOLE [Suspect]
     Indication: FUNGAL INFECTION
     Dosage: UNK,DAILY
     Route: 048
     Dates: start: 20120101
  2. PREMPRO [Suspect]
     Indication: OSTEOPOROSIS POSTMENOPAUSAL
     Dosage: 0.625/2.5 MG,DAILY
     Route: 048
     Dates: start: 20111201, end: 20120406

REACTIONS (8)
  - VULVOVAGINAL DISCOMFORT [None]
  - VAGINAL DISORDER [None]
  - NAUSEA [None]
  - ADNEXA UTERI PAIN [None]
  - HYPERSENSITIVITY [None]
  - DRUG INEFFECTIVE [None]
  - FUNGAL INFECTION [None]
  - VAGINAL DISCHARGE [None]
